FAERS Safety Report 8541716-5 (Version None)
Quarter: 2012Q3

REPORT INFORMATION
  Report Type: 
  Country: None (occurrence: None)
  Receive Date: 20120726
  Receipt Date: 20120723
  Transmission Date: 20120928
  Serious: Yes (Other)
  Sender: FDA-Public Use
  Company Number: CHPA2012US015821

PATIENT
  Age: 41 Year
  Sex: Male

DRUGS (2)
  1. VOLTAREN [Suspect]
     Dosage: 4 G, QD
     Route: 061
     Dates: start: 20120712, end: 20120701
  2. VOLTAREN [Suspect]
     Indication: PLANTAR FASCIITIS
     Dosage: UNK, UNK
     Route: 061
     Dates: start: 20110701

REACTIONS (13)
  - PHARYNGEAL ERYTHEMA [None]
  - HYPERTENSION [None]
  - NAUSEA [None]
  - DYSPNOEA [None]
  - OFF LABEL USE [None]
  - PHARYNGEAL OEDEMA [None]
  - THROAT IRRITATION [None]
  - DRUG ADMINISTERED AT INAPPROPRIATE SITE [None]
  - DIZZINESS [None]
  - INFLUENZA LIKE ILLNESS [None]
  - VIRAL INFECTION [None]
  - PYREXIA [None]
  - BLISTER [None]
